FAERS Safety Report 18686254 (Version 1)
Quarter: 2020Q4

REPORT INFORMATION
  Report Type: Spontaneous
  Country: US (occurrence: US)
  Receive Date: 20201231
  Receipt Date: 20201231
  Transmission Date: 20210114
  Serious: Yes (Death, Hospitalization)
  Sender: FDA-Public Use
  Company Number: US-BAYER-2020-287440

PATIENT
  Age: 61 Year
  Sex: Male

DRUGS (13)
  1. AMLODIPINE [Suspect]
     Active Substance: AMLODIPINE BESYLATE
     Route: 048
  2. HYDRALAZINE [Suspect]
     Active Substance: HYDRALAZINE HYDROCHLORIDE
     Route: 048
  3. DULOXETINE. [Suspect]
     Active Substance: DULOXETINE
     Route: 048
  4. ROSUVASTATIN. [Suspect]
     Active Substance: ROSUVASTATIN
     Route: 048
  5. METFORMIN [Suspect]
     Active Substance: METFORMIN HYDROCHLORIDE
     Route: 048
  6. DILTIAZEM. [Suspect]
     Active Substance: DILTIAZEM
     Route: 048
  7. INSULINE GLARGINE [Suspect]
     Active Substance: INSULIN GLARGINE
     Route: 042
  8. INSUL LISPRO [Suspect]
     Active Substance: INSULIN LISPRO
     Route: 042
  9. ASPIRIN (PAIN AND FEVER) [Suspect]
     Active Substance: ASPIRIN
     Route: 048
  10. ALLOPURINOL. [Suspect]
     Active Substance: ALLOPURINOL
     Route: 048
  11. OMEPRAZOLE. [Suspect]
     Active Substance: OMEPRAZOLE
     Dosage: UNK
     Route: 048
  12. CLONIDINE. [Suspect]
     Active Substance: CLONIDINE
     Route: 048
  13. LISINOPRIL. [Suspect]
     Active Substance: LISINOPRIL
     Route: 048

REACTIONS (2)
  - Completed suicide [Fatal]
  - Toxicity to various agents [Fatal]
